FAERS Safety Report 24529794 (Version 3)
Quarter: 2024Q4

REPORT INFORMATION
  Report Type: Spontaneous
  Country: CN (occurrence: CN)
  Receive Date: 20241021
  Receipt Date: 20241126
  Transmission Date: 20250115
  Serious: Yes (Hospitalization, Other)
  Sender: MERCK
  Company Number: CN-MFDS-2021000061-2410CHN007285

PATIENT
  Sex: Female

DRUGS (1)
  1. JANUVIA [Suspect]
     Active Substance: SITAGLIPTIN PHOSPHATE
     Indication: Diabetes mellitus
     Dosage: ON 30-SEP-2024 PURCHASED ONLINE 2 BOXES (14 TABLETS), PRODUCTION DATE: 04-SEP-2023
     Route: 048
     Dates: start: 2024, end: 202410

REACTIONS (13)
  - Angina pectoris [Unknown]
  - Headache [Unknown]
  - Goitre [Unknown]
  - Oxygen therapy [Unknown]
  - Insomnia [Unknown]
  - Pyrexia [Unknown]
  - Nasopharyngitis [Unknown]
  - Poor quality product administered [Unknown]
  - Product colour issue [Unknown]
  - Product contamination physical [Unknown]
  - Product label issue [Unknown]
  - Product blister packaging issue [Unknown]
  - Suspected counterfeit product [Unknown]

NARRATIVE: CASE EVENT DATE: 20240101
